FAERS Safety Report 9322423 (Version 2)
Quarter: 2013Q3

REPORT INFORMATION
  Report Type: Spontaneous
  Country: JP (occurrence: JP)
  Receive Date: 20130531
  Receipt Date: 20130703
  Transmission Date: 20140515
  Serious: Yes (Disabling)
  Sender: FDA-Public Use
  Company Number: JP-ALLERGAN-1306286US

PATIENT
  Age: 68 Year
  Sex: Female

DRUGS (1)
  1. BOTOX [Suspect]
     Indication: FACIAL SPASM
     Dosage: 22.5 UNITS, SINGLE
     Route: 030
     Dates: start: 20130325, end: 20130325

REACTIONS (3)
  - Eye pain [Recovering/Resolving]
  - VIIth nerve paralysis [Recovering/Resolving]
  - Facial pain [Recovering/Resolving]
